FAERS Safety Report 9780490 (Version 1)
Quarter: 2013Q4

REPORT INFORMATION
  Report Type: Spontaneous
  Country: GB (occurrence: GB)
  Receive Date: 20131224
  Receipt Date: 20131224
  Transmission Date: 20140711
  Serious: Yes (Hospitalization, Disabling, Other)
  Sender: FDA-Public Use
  Company Number: GB-MERCK-1312GBR009439

PATIENT
  Age: 64 Year
  Sex: Male
  Weight: 80 kg

DRUGS (3)
  1. DEXAMETHASONE 4MG/ML INJECTION [Suspect]
     Indication: PROPHYLAXIS OF NAUSEA AND VOMITING
     Dosage: 8 MG, UNK
     Route: 042
     Dates: start: 20131113, end: 20131113
  2. ANTINEOPLASTIC (UNSPECIFIED) [Suspect]
     Indication: BLADDER CANCER
  3. [COMPOSITION UNSPECIFIED] [Concomitant]

REACTIONS (1)
  - Abdominal wound dehiscence [Not Recovered/Not Resolved]
